FAERS Safety Report 21640280 (Version 2)
Quarter: 2023Q1

REPORT INFORMATION
  Report Type: Spontaneous
  Country: CH (occurrence: CH)
  Receive Date: 20221124
  Receipt Date: 20230118
  Transmission Date: 20230418
  Serious: Yes (Other)
  Sender: FDA-Public Use
  Company Number: CH-002147023-NVSC2022CH264203

PATIENT

DRUGS (1)
  1. COSENTYX [Suspect]
     Active Substance: SECUKINUMAB
     Indication: Netherton^s syndrome
     Dosage: UNK
     Route: 065
     Dates: start: 20211109, end: 20220330

REACTIONS (6)
  - Growth retardation [Recovering/Resolving]
  - Pruritus [Recovering/Resolving]
  - Weight gain poor [Recovered/Resolved]
  - Vomiting [Unknown]
  - Drug ineffective [Unknown]
  - Off label use [Recovered/Resolved]

NARRATIVE: CASE EVENT DATE: 20211109
